FAERS Safety Report 15167558 (Version 1)
Quarter: 2018Q3

REPORT INFORMATION
  Report Type: Spontaneous
  Country: ES (occurrence: ES)
  Receive Date: 20180719
  Receipt Date: 20180719
  Transmission Date: 20181010
  Serious: Yes (Other)
  Sender: FDA-Public Use
  Company Number: ES-TEVA-2018-ES-928449

PATIENT
  Age: 35 Year
  Sex: Female

DRUGS (3)
  1. LOMUSTINA (378A) [Concomitant]
     Active Substance: LOMUSTINE
     Indication: GLIOBLASTOMA MULTIFORME
     Route: 048
     Dates: start: 20171020, end: 20171020
  2. VINCRISTINA SULFATO (809SU) [Suspect]
     Active Substance: VINCRISTINE SULFATE
     Indication: GLIOBLASTOMA MULTIFORME
     Route: 042
     Dates: start: 20171028, end: 20171126
  3. NATULAN 50 MG CAPSULAS, 50 C?PSULAS [Suspect]
     Active Substance: PROCARBAZINE HYDROCHLORIDE
     Indication: GLIOBLASTOMA MULTIFORME
     Dosage: 100 MILLIGRAM DAILY;
     Route: 048
     Dates: start: 20171028, end: 20171118

REACTIONS (1)
  - Rash maculo-papular [Recovered/Resolved]

NARRATIVE: CASE EVENT DATE: 20171102
